FAERS Safety Report 11131142 (Version 2)
Quarter: 2015Q2

REPORT INFORMATION
  Report Type: Spontaneous
  Country: US (occurrence: US)
  Receive Date: 20150522
  Receipt Date: 20150528
  Transmission Date: 20150821
  Serious: Yes (Death, Other)
  Sender: FDA-Public Use
  Company Number: US-SUN PHARMACEUTICAL INDUSTRIES LTD-2015US-97624

PATIENT
  Age: 54 Year
  Sex: Male

DRUGS (2)
  1. CAPECITABINE. [Suspect]
     Active Substance: CAPECITABINE
     Indication: MULTIPLE ENDOCRINE NEOPLASIA TYPE 1
     Dosage: 1000 MG, BID
     Route: 048
  2. TEMOZOLOMIDE. [Suspect]
     Active Substance: TEMOZOLOMIDE
     Indication: MULTIPLE ENDOCRINE NEOPLASIA TYPE 1
     Dosage: 150MG/M2 DIVIDED
     Route: 048

REACTIONS (5)
  - Therapeutic response decreased [Unknown]
  - Toxicity to various agents [Unknown]
  - Diarrhoea [Unknown]
  - Nausea [Unknown]
  - Disease progression [Fatal]
